FAERS Safety Report 14299833 (Version 3)
Quarter: 2019Q2

REPORT INFORMATION
  Report Type: Spontaneous
  Country: US (occurrence: US)
  Receive Date: 20171219
  Receipt Date: 20190606
  Transmission Date: 20190711
  Serious: No
  Sender: FDA-Public Use
  Company Number: US-INCYTE CORPORATION-2017IN010603

PATIENT

DRUGS (4)
  1. IRON [Concomitant]
     Active Substance: IRON
     Indication: PRODUCT USED FOR UNKNOWN INDICATION
     Route: 065
  2. JAKAFI [Suspect]
     Active Substance: RUXOLITINIB
     Dosage: 15 MILLIGRAM, QOD
     Route: 048
     Dates: start: 20161122
  3. CIPRO [Concomitant]
     Active Substance: CIPROFLOXACIN HYDROCHLORIDE
     Indication: PRODUCT USED FOR UNKNOWN INDICATION
     Route: 065
  4. JAKAFI [Suspect]
     Active Substance: RUXOLITINIB
     Dosage: 15 MILLIGRAM, QOD
     Route: 048
     Dates: start: 20151201

REACTIONS (9)
  - Blood blister [Unknown]
  - Tooth disorder [Unknown]
  - Oral herpes [Unknown]
  - Pigmentation disorder [Unknown]
  - Gingivitis [Unknown]
  - Toothache [Unknown]
  - Tooth infection [Unknown]
  - Inappropriate schedule of product administration [Unknown]
  - Hyperaesthesia teeth [Unknown]
